FAERS Safety Report 22362593 (Version 2)
Quarter: 2024Q1

REPORT INFORMATION
  Report Type: Report from Study
  Country: US (occurrence: US)
  Receive Date: 20230524
  Receipt Date: 20240111
  Transmission Date: 20240409
  Serious: Yes (Disabling, Other)
  Sender: FDA-Public Use
  Company Number: US-HORIZON THERAPEUTICS-HZN-2022-006160

PATIENT

DRUGS (13)
  1. TEPEZZA [Suspect]
     Active Substance: TEPROTUMUMAB-TRBW
     Indication: Endocrine ophthalmopathy
     Dosage: FIRST INFUSION
     Route: 042
     Dates: start: 20220624
  2. TEPEZZA [Suspect]
     Active Substance: TEPROTUMUMAB-TRBW
     Indication: Graves^ disease
     Dosage: THIRD INFUSION
     Route: 042
     Dates: start: 2022
  3. TEPEZZA [Suspect]
     Active Substance: TEPROTUMUMAB-TRBW
     Dosage: FIFTH INFUSION
     Route: 042
     Dates: start: 2022
  4. TEPEZZA [Suspect]
     Active Substance: TEPROTUMUMAB-TRBW
     Dosage: LAST INFUSION
     Route: 042
     Dates: start: 202209
  5. CRESTOR [Concomitant]
     Active Substance: ROSUVASTATIN CALCIUM
     Dosage: 1 TABLET ONCE DAILY
     Route: 048
     Dates: start: 20220711
  6. AMLODIPINE [Concomitant]
     Active Substance: AMLODIPINE BESYLATE
     Dosage: 1 TABLET ONCE DAILY
     Route: 048
     Dates: start: 20220607
  7. METHIMAZOLE [Concomitant]
     Active Substance: METHIMAZOLE
     Dosage: 1 TABLET EVERY DAY
     Route: 048
     Dates: start: 20220730
  8. VALSARTAN [Concomitant]
     Active Substance: VALSARTAN
     Dosage: 1 TABLET EVERY DAY
     Route: 048
     Dates: start: 20220110
  9. CIPRO [Concomitant]
     Active Substance: CIPROFLOXACIN HYDROCHLORIDE
     Dosage: 1 TABLET EVERY 12 HOURS
     Route: 048
     Dates: start: 20220919
  10. DEXTROSE [Concomitant]
     Active Substance: DEXTROSE\DEXTROSE MONOHYDRATE
     Indication: Hypoglycaemia
     Dosage: 4 TABS PO AS NEEDED CAN REPEAT Q15MIN AS NEEDED
     Route: 048
     Dates: start: 20220919
  11. MUPIROCIN [Concomitant]
     Active Substance: MUPIROCIN
     Dosage: 2 TIMES EVERY DAY A SMALL AMOUNT TO THE AFFECTED AREA
     Route: 061
     Dates: start: 20220919
  12. TRULICITY [Concomitant]
     Active Substance: DULAGLUTIDE
     Dosage: 0.75MG/0.5 ML
     Route: 058
     Dates: start: 20220919
  13. VITAMIN D3 [Concomitant]
     Active Substance: CHOLECALCIFEROL
     Dosage: 1 TABLET EVERY DAY
     Route: 048

REACTIONS (23)
  - Deafness permanent [Not Recovered/Not Resolved]
  - Physical disability [Not Recovered/Not Resolved]
  - Disability [Not Recovered/Not Resolved]
  - Dyspnoea [Unknown]
  - Pain [Not Recovered/Not Resolved]
  - Injury [Not Recovered/Not Resolved]
  - Anxiety [Not Recovered/Not Resolved]
  - Concomitant disease aggravated [Not Recovered/Not Resolved]
  - Discomfort [Unknown]
  - Impaired quality of life [Not Recovered/Not Resolved]
  - Emotional distress [Not Recovered/Not Resolved]
  - Auditory disorder [Not Recovered/Not Resolved]
  - Abdominal pain [Unknown]
  - Hyperglycaemia [Unknown]
  - Tinnitus [Not Recovered/Not Resolved]
  - Alopecia [Unknown]
  - Muscle spasms [Unknown]
  - Fatigue [Unknown]
  - Localised infection [Unknown]
  - Bradycardia [Unknown]
  - Exophthalmos [Unknown]
  - Economic problem [Not Recovered/Not Resolved]
  - Product quality issue [Unknown]

NARRATIVE: CASE EVENT DATE: 20220101
